FAERS Safety Report 4933718-2 (Version None)
Quarter: 2006Q1

REPORT INFORMATION
  Report Type: 
  Country: None (occurrence: None)
  Receive Date: 20060306
  Receipt Date: 20051130
  Transmission Date: 20060701
  Serious: Yes (Other)
  Sender: FDA-Public Use
  Company Number: JP-BOEHRINGER INGELHEIM PHARMACEUTICALS, INC.-2005-BP-20864NB

PATIENT
  Sex: Female
  Weight: 48 kg

DRUGS (3)
  1. MICARDIS [Suspect]
     Indication: HYPERTENSION
     Route: 048
     Dates: start: 20040406
  2. CARVISKEN [Concomitant]
     Indication: ANGINA PECTORIS
     Route: 048
     Dates: start: 20040406
  3. BUFFERIN [Concomitant]
     Indication: ATRIAL FIBRILLATION
     Route: 048
     Dates: start: 20040406

REACTIONS (1)
  - HEPATITIS [None]
